FAERS Safety Report 14427105 (Version 1)
Quarter: 2018Q1

REPORT INFORMATION
  Report Type: Spontaneous
  Country: US (occurrence: US)
  Receive Date: 20180123
  Receipt Date: 20180123
  Transmission Date: 20180509
  Serious: No
  Sender: FDA-Public Use
  Company Number: US-IMPAX LABORATORIES, INC-2017-IPXL-03320

PATIENT
  Age: 68 Year
  Sex: Male

DRUGS (5)
  1. VITAMIN E [Concomitant]
     Active Substance: .ALPHA.-TOCOPHEROL
     Indication: PRODUCT USED FOR UNKNOWN INDICATION
     Dosage: UNK
     Route: 065
  2. RYTARY [Suspect]
     Active Substance: CARBIDOPA\LEVODOPA
     Indication: PARKINSON^S DISEASE
     Dosage: 61.25/245MG 1 CAPSULE 3 TIMES PER DAY AND 48.75/195MG 1 CAPSULE 3 TIMES PER DAY
     Route: 065
     Dates: start: 201707
  3. METOPROLOL. [Concomitant]
     Active Substance: METOPROLOL
     Indication: PRODUCT USED FOR UNKNOWN INDICATION
     Dosage: UNK
     Route: 065
  4. VALSARTAN. [Concomitant]
     Active Substance: VALSARTAN
     Indication: PRODUCT USED FOR UNKNOWN INDICATION
     Dosage: 160 MG, UNK
     Route: 065
  5. RYTARY [Suspect]
     Active Substance: CARBIDOPA\LEVODOPA
     Dosage: 61.25/245MG, 2 IN MORNING, 2 IN AFTERNOON, 1 IN BETWEEN MORNING AND AFTERNOON, 48.75/195MG 1 BID
     Route: 065
     Dates: start: 2017

REACTIONS (4)
  - Tremor [Unknown]
  - Somnolence [Recovered/Resolved]
  - Diplopia [Recovered/Resolved]
  - Cataract [Unknown]
